FAERS Safety Report 11833959 (Version 1)
Quarter: 2015Q4

REPORT INFORMATION
  Report Type: Spontaneous
  Country: TR (occurrence: TR)
  Receive Date: 20151214
  Receipt Date: 20151214
  Transmission Date: 20160305
  Serious: Yes (Life-Threatening, Hospitalization)
  Sender: FDA-Public Use
  Company Number: PHHY2015TR160594

PATIENT
  Age: 15 Year
  Sex: Male

DRUGS (1)
  1. THIAMAZOLE [Suspect]
     Active Substance: METHIMAZOLE
     Indication: HYPERTHYROIDISM
     Dosage: 25 MG, QD
     Route: 065

REACTIONS (1)
  - Serum sickness [Recovered/Resolved]
